FAERS Safety Report 11302899 (Version 2)
Quarter: 2015Q3

REPORT INFORMATION
  Report Type: Spontaneous
  Country: IT (occurrence: IT)
  Receive Date: 20150723
  Receipt Date: 20150814
  Transmission Date: 20151125
  Serious: Yes (Hospitalization)
  Sender: FDA-Public Use
  Company Number: IT-JNJFOC-20150713503

PATIENT
  Age: 46 Year
  Sex: Female
  Weight: 80 kg

DRUGS (6)
  1. IBUPROFEN. [Suspect]
     Active Substance: IBUPROFEN
     Route: 048
  2. COLCHICINE. [Concomitant]
     Active Substance: COLCHICINE
     Indication: GOUT
     Route: 065
     Dates: start: 20150202, end: 20150210
  3. PANTORC [Concomitant]
     Active Substance: PANTOPRAZOLE SODIUM
     Route: 065
  4. IBUPROFEN. [Suspect]
     Active Substance: IBUPROFEN
     Indication: PERICARDITIS
     Route: 048
     Dates: start: 20150202, end: 20150210
  5. COLCHICINA [Suspect]
     Active Substance: COLCHICINE
     Indication: GOUT
     Route: 048
     Dates: start: 20150202, end: 20150210
  6. SPIDIFEN [Concomitant]
     Indication: PERICARDITIS
     Dosage: 1800 MG (3X600MG)
     Route: 048
     Dates: start: 20150202, end: 20150210

REACTIONS (3)
  - Dyspnoea [Recovered/Resolved]
  - Product use issue [Unknown]
  - Throat tightness [Unknown]

NARRATIVE: CASE EVENT DATE: 20150202
